FAERS Safety Report 15527436 (Version 1)
Quarter: 2018Q4

REPORT INFORMATION
  Report Type: Spontaneous
  Country: HR (occurrence: HR)
  Receive Date: 20181020
  Receipt Date: 20181020
  Transmission Date: 20190205
  Serious: Yes (Other)
  Sender: FDA-Public Use
  Company Number: HR-ACCORD-073721

PATIENT
  Age: 50 Year
  Sex: Male
  Weight: 76 kg

DRUGS (3)
  1. FLUOROURACIL. [Suspect]
     Active Substance: FLUOROURACIL
     Indication: OROPHARYNGEAL CANCER
     Dosage: ALSO RECEIVED 740 MG
     Route: 042
     Dates: start: 20171202, end: 20171203
  2. FOLINIC ACID [Suspect]
     Active Substance: LEUCOVORIN
     Indication: OROPHARYNGEAL CANCER
     Route: 042
     Dates: start: 20171203, end: 20171203
  3. OXALIPLATIN PLIVA [Suspect]
     Active Substance: OXALIPLATIN
     Indication: OROPHARYNGEAL CANCER
     Route: 041
     Dates: start: 20171202, end: 20171202

REACTIONS (1)
  - Neuropathy peripheral [Not Recovered/Not Resolved]

NARRATIVE: CASE EVENT DATE: 20171210
